FAERS Safety Report 13195436 (Version 1)
Quarter: 2017Q1

REPORT INFORMATION
  Report Type: Spontaneous
  Country: CH (occurrence: CH)
  Receive Date: 20170208
  Receipt Date: 20170208
  Transmission Date: 20170428
  Serious: Yes (Death)
  Sender: FDA-Public Use
  Company Number: CH-ROCHE-1890604

PATIENT
  Age: 43 Year
  Sex: Male

DRUGS (11)
  1. SOVALDI [Suspect]
     Active Substance: SOFOSBUVIR
     Indication: CHRONIC HEPATITIS C
     Route: 048
     Dates: start: 201611
  2. PANTOZOL (SWITZERLAND) [Concomitant]
     Active Substance: PANTOPRAZOLE SODIUM
     Route: 048
  3. KETALGINE (SWITZERLAND) [Concomitant]
     Active Substance: METHADONE HYDROCHLORIDE
     Dosage: DOSAGE 85 MG - 0 - 90 MG - 0
     Route: 048
  4. ALDACTONE [Concomitant]
     Active Substance: SPIRONOLACTONE
     Route: 048
  5. TRAMAL [Concomitant]
     Active Substance: TRAMADOL
     Route: 048
  6. VI-DE 3 [Concomitant]
     Active Substance: CHOLECALCIFEROL
     Route: 048
  7. DUPHALAC SIRUP (SWITZERLAND) [Concomitant]
     Route: 048
  8. LIORESAL [Concomitant]
     Active Substance: BACLOFEN
     Route: 048
  9. DAKLINZA [Suspect]
     Active Substance: DACLATASVIR
     Indication: CHRONIC HEPATITIS C
     Route: 048
     Dates: start: 201611
  10. COPEGUS [Suspect]
     Active Substance: RIBAVIRIN
     Indication: CHRONIC HEPATITIS C
     Dosage: DOSAGE NOT KNOWN
     Route: 048
     Dates: start: 201611
  11. SERESTA [Concomitant]
     Active Substance: OXAZEPAM
     Dosage: DOSAGE: 30 MG - 15 MG - 15 MG - 45 MG
     Route: 048

REACTIONS (1)
  - Death [Fatal]

NARRATIVE: CASE EVENT DATE: 20170120
